FAERS Safety Report 9132876 (Version 3)
Quarter: 2013Q2

REPORT INFORMATION
  Report Type: Report from Study
  Country: HN (occurrence: HN)
  Receive Date: 20130301
  Receipt Date: 20130404
  Transmission Date: 20140414
  Serious: Yes (Hospitalization)
  Sender: FDA-Public Use
  Company Number: HN-ROCHE-1196862

PATIENT
  Age: 56 Year
  Sex: Female

DRUGS (3)
  1. BONVIVA [Suspect]
     Indication: OSTEOPOROSIS
     Route: 048
     Dates: start: 20090101
  2. ENANTYUM [Concomitant]
     Indication: PAIN
  3. INSULIN [Concomitant]
     Indication: DIABETES MELLITUS

REACTIONS (2)
  - Femur fracture [Recovered/Resolved]
  - Fall [Unknown]
